FAERS Safety Report 11391716 (Version 1)
Quarter: 2015Q3

REPORT INFORMATION
  Report Type: Spontaneous
  Country: US (occurrence: US)
  Receive Date: 20150818
  Receipt Date: 20150818
  Transmission Date: 20151125
  Serious: No
  Sender: FDA-Public Use
  Company Number: US-PFIZER INC-2015262727

PATIENT
  Sex: Female

DRUGS (4)
  1. NABUMETONE. [Suspect]
     Active Substance: NABUMETONE
  2. PENTOTHAL [Suspect]
     Active Substance: THIOPENTAL SODIUM
  3. MORPHINE SULFATE. [Suspect]
     Active Substance: MORPHINE SULFATE
     Dosage: UNK
  4. ASPIRIN /00002701/ [Suspect]
     Active Substance: ASPIRIN
     Dosage: UNK

REACTIONS (1)
  - Drug hypersensitivity [Not Recovered/Not Resolved]
